FAERS Safety Report 23041367 (Version 1)
Quarter: 2023Q4

REPORT INFORMATION
  Report Type: Spontaneous
  Country: JP (occurrence: JP)
  Receive Date: 20231007
  Receipt Date: 20231007
  Transmission Date: 20240109
  Serious: Yes (Other)
  Sender: FDA-Public Use
  Company Number: JP-Accord-382221

PATIENT
  Age: 42 Year
  Sex: Female

DRUGS (2)
  1. CISPLATIN [Suspect]
     Active Substance: CISPLATIN
     Indication: Squamous cell carcinoma of the tongue
     Dosage: 5 ML/MIN ONCE A WEEK
  2. SODIUM THIOSULFATE [Concomitant]
     Active Substance: SODIUM THIOSULFATE
     Dosage: 0.4 G/MG CISPLATIN OVER 8 H FROM 1 H PRIOR TO CISPLATIN ADMINISTRATION

REACTIONS (4)
  - Stomatitis [Recovering/Resolving]
  - Dermatitis [Recovering/Resolving]
  - Neutropenia [Recovering/Resolving]
  - Paronychia [Recovering/Resolving]
